FAERS Safety Report 15750159 (Version 2)
Quarter: 2019Q1

REPORT INFORMATION
  Report Type: Spontaneous
  Country: US (occurrence: US)
  Receive Date: 20181221
  Receipt Date: 20190118
  Transmission Date: 20190417
  Serious: Yes (Other)
  Sender: FDA-Public Use
  Company Number: US-BAYER-2018-237855

PATIENT
  Age: 37 Year
  Sex: Female

DRUGS (5)
  1. PROZAC [Concomitant]
     Active Substance: FLUOXETINE HYDROCHLORIDE
  2. MIRENA [Suspect]
     Active Substance: LEVONORGESTREL
     Indication: CONTRACEPTION
     Dosage: 20 MCG/24HR, CONT
     Dates: start: 201304, end: 201808
  3. MIRENA [Suspect]
     Active Substance: LEVONORGESTREL
     Indication: PROPHYLAXIS
  4. MIRENA [Suspect]
     Active Substance: LEVONORGESTREL
     Indication: PROPHYLAXIS
  5. MIRENA [Suspect]
     Active Substance: LEVONORGESTREL
     Indication: CONTRACEPTION

REACTIONS (21)
  - Deafness [Not Recovered/Not Resolved]
  - Tinnitus [None]
  - Genital haemorrhage [Recovered/Resolved]
  - Menstrual disorder [None]
  - Mood altered [Recovering/Resolving]
  - Head discomfort [None]
  - Contusion [Recovered/Resolved]
  - Device use issue [None]
  - Prolactin-producing pituitary tumour [None]
  - Back pain [Recovered/Resolved]
  - Hypoaesthesia [Recovered/Resolved]
  - Dizziness [None]
  - Hemianaesthesia [Recovered/Resolved]
  - Seizure [None]
  - Asthenia [Recovered/Resolved]
  - Hypotension [Recovered/Resolved]
  - Headache [None]
  - Malaise [Recovered/Resolved]
  - Brain oedema [None]
  - Heart rate increased [Recovered/Resolved]
  - Breast enlargement [Recovered/Resolved]

NARRATIVE: CASE EVENT DATE: 2015
